FAERS Safety Report 12469357 (Version 1)
Quarter: 2016Q2

REPORT INFORMATION
  Report Type: Report from Study
  Country: AU (occurrence: AU)
  Receive Date: 20160615
  Receipt Date: 20160615
  Transmission Date: 20160815
  Serious: Yes (Hospitalization, Other)
  Sender: FDA-Public Use
  Company Number: AU-ABBVIE-16P-008-1650187-00

PATIENT
  Sex: Female

DRUGS (1)
  1. DUODOPA [Suspect]
     Active Substance: CARBIDOPA\LEVODOPA
     Indication: PARKINSON^S DISEASE
     Dosage: 16 HOURLY INFUSION
     Route: 050
     Dates: start: 20160530

REACTIONS (5)
  - Hypoaesthesia [Recovered/Resolved]
  - Pneumoperitoneum [Unknown]
  - Weight bearing difficulty [Recovered/Resolved]
  - Parkinson^s disease [Unknown]
  - Dyskinesia [Recovered/Resolved]
